FAERS Safety Report 6301685-5 (Version None)
Quarter: 2009Q3

REPORT INFORMATION
  Report Type: 
  Country: None (occurrence: None)
  Receive Date: 20090807
  Receipt Date: 20090729
  Transmission Date: 20100115
  Serious: Yes (Other)
  Sender: FDA-Public Use
  Company Number: PHHY2009JP15836

PATIENT
  Sex: Female
  Weight: 60 kg

DRUGS (9)
  1. LOCHOL [Suspect]
     Indication: DYSLIPIDAEMIA
     Dosage: 30 MG/DAY
     Route: 048
     Dates: start: 20081224, end: 20090210
  2. LOCHOL [Suspect]
     Dosage: 30 MG EVERY OTHER DAY
     Route: 048
     Dates: start: 20090210, end: 20090410
  3. OLMETEC [Concomitant]
     Indication: HYPERTENSION
     Dosage: 20 MG, UNK
     Route: 048
     Dates: start: 20041216
  4. OLMETEC [Concomitant]
     Dosage: 10 MG, UNK
     Route: 048
  5. OLMETEC [Concomitant]
     Dosage: 20 MG, UNK
     Route: 048
  6. OLMETEC [Concomitant]
     Dosage: 10 MG, UNK
     Route: 048
  7. OLMETEC [Concomitant]
     Dosage: 20 MG, UNK
     Route: 048
  8. BONALON [Concomitant]
     Indication: OSTEOPOROSIS
     Dosage: 5 MG, UNK
     Route: 048
     Dates: start: 20090409
  9. DIOVAN [Concomitant]
     Indication: HYPERTENSION
     Dosage: 80 MG, UNK
     Route: 048
     Dates: start: 20041202, end: 20041216

REACTIONS (9)
  - ALANINE AMINOTRANSFERASE INCREASED [None]
  - ASPARTATE AMINOTRANSFERASE INCREASED [None]
  - BLOOD ALKALINE PHOSPHATASE INCREASED [None]
  - BLOOD LACTATE DEHYDROGENASE [None]
  - BLOOD LACTATE DEHYDROGENASE INCREASED [None]
  - BLOOD TRIGLYCERIDES INCREASED [None]
  - GAMMA-GLUTAMYLTRANSFERASE INCREASED [None]
  - HEPATIC FUNCTION ABNORMAL [None]
  - LIVER DISORDER [None]
